FAERS Safety Report 7953716-4 (Version None)
Quarter: 2011Q4

REPORT INFORMATION
  Report Type: 
  Country: None (occurrence: None)
  Receive Date: 20111202
  Receipt Date: 20111129
  Transmission Date: 20120403
  Serious: Yes (Death, Congenital Anomaly, Other)
  Sender: FDA-Public Use
  Company Number: US-PFIZER INC-2011158080

PATIENT
  Sex: Female

DRUGS (7)
  1. COLACE [Concomitant]
     Dosage: UNK
     Route: 064
  2. SUDAFED 12 HOUR [Concomitant]
     Indication: NASOPHARYNGITIS
     Dosage: UNK
     Route: 064
     Dates: start: 20100101
  3. GUAIFENESIN [Concomitant]
     Indication: NASOPHARYNGITIS
     Dosage: UNK
     Route: 064
     Dates: start: 20100101
  4. ACETAMINOPHEN [Concomitant]
     Indication: NASOPHARYNGITIS
     Dosage: UNK
     Route: 064
     Dates: start: 20100101
  5. MULTI-VITAMINS [Concomitant]
     Dosage: UNK
     Route: 064
  6. IRON [Concomitant]
     Dosage: UNK
     Route: 064
  7. DETROL LA [Suspect]
     Indication: HYPERTONIC BLADDER
     Dosage: 4 MG, 1X/DAY
     Route: 064

REACTIONS (3)
  - INTRA-UTERINE DEATH [None]
  - RENAL APLASIA [None]
  - FOETAL EXPOSURE DURING PREGNANCY [None]
